FAERS Safety Report 10962700 (Version 4)
Quarter: 2015Q2

REPORT INFORMATION
  Report Type: Spontaneous
  Country: JP (occurrence: JP)
  Receive Date: 20150327
  Receipt Date: 20150630
  Transmission Date: 20150821
  Serious: Yes (Hospitalization)
  Sender: FDA-Public Use
  Company Number: PHHY2015JP033533

PATIENT
  Age: 54 Year
  Sex: Male

DRUGS (17)
  1. RITUXIMAB [Suspect]
     Active Substance: RITUXIMAB
     Indication: FOLLICLE CENTRE LYMPHOMA, FOLLICULAR GRADE I, II, III STAGE III
     Route: 065
  2. IBRITUMOMAB TIUXETAN [Suspect]
     Active Substance: IBRITUMOMAB TIUXETAN
     Indication: FOLLICLE CENTRE LYMPHOMA, FOLLICULAR GRADE I, II, III STAGE III
     Route: 065
  3. METHOTREXATE [Concomitant]
     Active Substance: METHOTREXATE
     Indication: PROPHYLAXIS AGAINST GRAFT VERSUS HOST DISEASE
     Route: 065
  4. ETOPOSIDE. [Suspect]
     Active Substance: ETOPOSIDE
     Indication: FOLLICLE CENTRE LYMPHOMA, FOLLICULAR GRADE I, II, III STAGE III
     Route: 065
  5. ADRIAMYCIN [Suspect]
     Active Substance: DOXORUBICIN HYDROCHLORIDE
     Indication: FOLLICLE CENTRE LYMPHOMA, FOLLICULAR GRADE I, II, III STAGE III
     Route: 065
  6. CYCLOSPORIN A [Concomitant]
     Active Substance: CYCLOSPORINE
     Indication: PROPHYLAXIS AGAINST GRAFT VERSUS HOST DISEASE
     Route: 065
  7. FLUDARABINE [Suspect]
     Active Substance: FLUDARABINE PHOSPHATE
     Dosage: 25 MG/M2, UNK
     Route: 065
  8. DEXAMETHASONE. [Suspect]
     Active Substance: DEXAMETHASONE
     Indication: FOLLICLE CENTRE LYMPHOMA, FOLLICULAR GRADE I, II, III STAGE III
     Route: 065
  9. MELPHALAN [Suspect]
     Active Substance: MELPHALAN
     Indication: FOLLICLE CENTRE LYMPHOMA, FOLLICULAR GRADE I, II, III STAGE III
     Route: 065
  10. VINCRISTINE [Suspect]
     Active Substance: VINCRISTINE
     Indication: FOLLICLE CENTRE LYMPHOMA, FOLLICULAR GRADE I, II, III STAGE III
     Route: 065
  11. FLUDARABINE [Suspect]
     Active Substance: FLUDARABINE PHOSPHATE
     Indication: FOLLICLE CENTRE LYMPHOMA, FOLLICULAR GRADE I, II, III STAGE III
     Route: 065
  12. PREDNISOLONE. [Suspect]
     Active Substance: PREDNISOLONE
     Indication: FOLLICLE CENTRE LYMPHOMA, FOLLICULAR GRADE I, II, III STAGE III
     Route: 065
  13. MELPHALAN [Suspect]
     Active Substance: MELPHALAN
     Dosage: 80 MG/M2, UNK
     Route: 065
  14. AFINITOR [Suspect]
     Active Substance: EVEROLIMUS
     Indication: FOLLICLE CENTRE LYMPHOMA, FOLLICULAR GRADE I, II, III STAGE III
     Dosage: 10 MG-5MG, UNK
     Route: 048
  15. CYTARABINE. [Suspect]
     Active Substance: CYTARABINE
     Indication: FOLLICLE CENTRE LYMPHOMA, FOLLICULAR GRADE I, II, III STAGE III
     Route: 065
  16. CYCLOPHOSPHAMIDE. [Suspect]
     Active Substance: CYCLOPHOSPHAMIDE
     Indication: FOLLICLE CENTRE LYMPHOMA, FOLLICULAR GRADE I, II, III STAGE III
     Route: 065
  17. BENDAMUSTINE [Suspect]
     Active Substance: BENDAMUSTINE
     Indication: FOLLICLE CENTRE LYMPHOMA, FOLLICULAR GRADE I, II, III STAGE III
     Route: 065

REACTIONS (7)
  - Anaemia [Unknown]
  - Cytomegalovirus chorioretinitis [Recovered/Resolved]
  - Follicle centre lymphoma, follicular grade I, II, III refractory [Recovering/Resolving]
  - Drug effect incomplete [Unknown]
  - Neutropenia [Recovered/Resolved]
  - Clostridium difficile colitis [Recovered/Resolved]
  - Myelodysplastic syndrome [Recovering/Resolving]

NARRATIVE: CASE EVENT DATE: 201202
